FAERS Safety Report 7591503-X (Version None)
Quarter: 2011Q2

REPORT INFORMATION
  Report Type: 
  Country: None (occurrence: None)
  Receive Date: 20110627
  Receipt Date: 20110616
  Transmission Date: 20111010
  Serious: Yes (Other)
  Sender: FDA-Public Use
  Company Number: 2011-1360

PATIENT
  Age: 60 Year
  Sex: Male

DRUGS (6)
  1. SOMATULINE LP (SOMATULINE SR) (LANREOTIDE) (LANREOTIDE ACETATE) [Suspect]
     Indication: NEUROENDOCRINE TUMOUR
     Dosage: 120MG (120 MG, 1 IN 1 M), SUBCUTANEOUS, (60 MG, 1 IN 1 M), SUBCUTANEOUS
     Dates: start: 20060101
  2. VALACYCLOVIR [Concomitant]
  3. PERINDOPRIL ERBUMINE [Suspect]
     Indication: CARDIAC FAILURE
  4. ASPEGIC 1000 [Concomitant]
  5. RABEPRAZOLE SODIUM [Concomitant]
  6. CERTICAN [Concomitant]

REACTIONS (2)
  - CARDIAC FAILURE [None]
  - RENAL FAILURE [None]
